FAERS Safety Report 19485890 (Version 1)
Quarter: 2021Q3

REPORT INFORMATION
  Report Type: Spontaneous
  Country: SI (occurrence: SI)
  Receive Date: 20210702
  Receipt Date: 20210702
  Transmission Date: 20211014
  Serious: Yes (Death, Other)
  Sender: FDA-Public Use
  Company Number: SI-PFIZER INC-2021749174

PATIENT
  Age: 50 Year
  Sex: Male

DRUGS (7)
  1. DEXAMETHASONE. [Concomitant]
     Active Substance: DEXAMETHASONE
     Indication: CONFUSIONAL STATE
     Dosage: UNK
  2. MELPHALAN. [Concomitant]
     Active Substance: MELPHALAN
     Indication: AMYLOIDOSIS
  3. DEXAMETHASONE. [Concomitant]
     Active Substance: DEXAMETHASONE
     Indication: SEIZURE
  4. METHYLPREDNISOLONE ACETATE. [Suspect]
     Active Substance: METHYLPREDNISOLONE ACETATE
     Indication: LICHEN MYXOEDEMATOSUS
     Dosage: UNK
  5. MELPHALAN. [Concomitant]
     Active Substance: MELPHALAN
     Indication: SEIZURE
  6. MELPHALAN. [Concomitant]
     Active Substance: MELPHALAN
     Indication: CONFUSIONAL STATE
     Dosage: UNK
  7. DEXAMETHASONE. [Concomitant]
     Active Substance: DEXAMETHASONE
     Indication: AMYLOIDOSIS

REACTIONS (1)
  - Sepsis [Fatal]
